FAERS Safety Report 5202582-9 (Version None)
Quarter: 2007Q1

REPORT INFORMATION
  Report Type: 
  Country: None (occurrence: None)
  Receive Date: 20070109
  Receipt Date: 20061211
  Transmission Date: 20070707
  Serious: Yes (Death, Hospitalization, Other)
  Sender: FDA-Public Use
  Company Number: US-PFIZER INC-2006123192

PATIENT
  Sex: Male
  Weight: 99.8 kg

DRUGS (2)
  1. BEXTRA [Suspect]
     Indication: ARTHRALGIA
     Route: 048
     Dates: start: 20040510, end: 20040904
  2. BEXTRA [Suspect]
     Indication: OSTEOARTHRITIS

REACTIONS (3)
  - ARTERIOSCLEROSIS [None]
  - CARDIAC ARREST [None]
  - RESPIRATORY ARREST [None]
